FAERS Safety Report 23922649 (Version 1)
Quarter: 2024Q2

REPORT INFORMATION
  Report Type: Spontaneous
  Country: ES (occurrence: ES)
  Receive Date: 20240531
  Receipt Date: 20240531
  Transmission Date: 20240715
  Serious: Yes (Other)
  Sender: FDA-Public Use
  Company Number: ES-CELLTRION INC.-2024ES012770

PATIENT

DRUGS (6)
  1. INFLIXIMAB [Suspect]
     Active Substance: INFLIXIMAB
     Indication: Crohn^s disease
     Dosage: 120MG C/2 SEM
     Route: 058
     Dates: start: 20210415, end: 20220623
  2. BICARBONATO [Concomitant]
     Indication: Nephropathy
     Dosage: 2 G EVERY 1 DAY
     Route: 048
     Dates: start: 20161104
  3. CALCIFEDIOL [Concomitant]
     Active Substance: CALCIFEDIOL
     Indication: Vitamin D deficiency
     Dosage: 0.26 MG EVERY 1 DAY
     Route: 048
     Dates: start: 20200702
  4. OMEPRAZOLE [Concomitant]
     Active Substance: DONEPEZIL HYDROCHLORIDE\OMEPRAZOLE\OMEPRAZOLE MAGNESIUM
     Indication: Gastroduodenal ulcer
     Dosage: 20 MG EVERY 1 DAY
     Route: 048
     Dates: start: 20170405
  5. LEVOSULPIRIDA [Concomitant]
     Indication: Epigastric discomfort
     Dosage: 20 MG EVERY 8 HOURS
     Route: 048
     Dates: start: 20210712
  6. ROCALTROL [Concomitant]
     Active Substance: CALCITRIOL
     Indication: Hyperparathyroidism secondary
     Dosage: 0.5 MG EVERY 1 DAY
     Route: 048
     Dates: start: 20190503

REACTIONS (1)
  - Noninfectious myelitis [Unknown]

NARRATIVE: CASE EVENT DATE: 20220401
